FAERS Safety Report 9098958 (Version 2)
Quarter: 2014Q1

REPORT INFORMATION
  Report Type: Report from Study
  Country: DE (occurrence: DE)
  Receive Date: 20130214
  Receipt Date: 20140124
  Transmission Date: 20141002
  Serious: Yes (Hospitalization, Other)
  Sender: FDA-Public Use
  Company Number: DE-GILEAD-2013-0069857

PATIENT
  Age: 67 Year
  Sex: Male
  Weight: 85.8 kg

DRUGS (5)
  1. RANOLAZINE [Suspect]
     Indication: ARRHYTHMIA PROPHYLAXIS
     Dosage: 500 MG, BID
     Route: 048
     Dates: start: 20130123, end: 20130514
  2. DABIGATRAN [Concomitant]
     Indication: ANTICOAGULANT THERAPY
     Dosage: 150 MG, BID
     Route: 048
     Dates: start: 20130118
  3. RAMIPRIL [Concomitant]
     Indication: HYPERTENSION
     Dosage: 10 MG, QD
     Route: 048
     Dates: start: 200304
  4. LEVOTHYROXIN [Concomitant]
     Indication: HYPOTHYROIDISM
     Dosage: 150 ?G, QD
     Route: 048
     Dates: start: 201107
  5. METOPROLOL SUCCINATE [Concomitant]
     Indication: HYPERTENSION
     Dosage: 35.5 MG, QD
     Route: 048
     Dates: start: 200304

REACTIONS (3)
  - Acute coronary syndrome [Recovered/Resolved]
  - Angina pectoris [Recovered/Resolved]
  - Dyspnoea [Recovered/Resolved]
